FAERS Safety Report 7278618-0 (Version None)
Quarter: 2011Q1

REPORT INFORMATION
  Report Type: 
  Country: None (occurrence: None)
  Receive Date: 20110207
  Receipt Date: 20110202
  Transmission Date: 20110831
  Serious: Yes (Other)
  Sender: FDA-Public Use
  Company Number: IE-ABBOTT-11P-229-0702458-00

PATIENT
  Sex: Female

DRUGS (2)
  1. HUMIRA [Suspect]
     Indication: ARTHRITIS
     Dates: start: 20080101, end: 20100101
  2. HUMIRA [Suspect]
     Indication: COLITIS ULCERATIVE

REACTIONS (6)
  - VOMITING [None]
  - GAMMA-GLUTAMYLTRANSFERASE ABNORMAL [None]
  - NAUSEA [None]
  - ASCITES [None]
  - HEPATIC NEOPLASM MALIGNANT [None]
  - GASTROINTESTINAL CANCER METASTATIC [None]
